FAERS Safety Report 7699408-0 (Version None)
Quarter: 2011Q3

REPORT INFORMATION
  Report Type: 
  Country: None (occurrence: None)
  Receive Date: 20110819
  Receipt Date: 20110810
  Transmission Date: 20111222
  Serious: Yes (Other)
  Sender: FDA-Public Use
  Company Number: US-ASTRAZENECA-2011SE47733

PATIENT
  Age: 74 Year
  Sex: Female

DRUGS (3)
  1. DEPAKOTE [Concomitant]
  2. XANEX [Concomitant]
  3. SEROQUEL [Suspect]
     Route: 048

REACTIONS (1)
  - HEAT STROKE [None]
